FAERS Safety Report 5423927-0 (Version None)
Quarter: 2007Q3

REPORT INFORMATION
  Report Type: 
  Country: None (occurrence: None)
  Receive Date: 20070823
  Receipt Date: 20070814
  Transmission Date: 20080115
  Serious: Yes (Hospitalization)
  Sender: FDA-Public Use
  Company Number: AU-ASTRAZENECA-2007AP03799

PATIENT
  Age: 17863 Day
  Sex: Female
  Weight: 92 kg

DRUGS (10)
  1. CRESTOR [Suspect]
     Route: 048
     Dates: start: 20070410
  2. AVAPRO [Concomitant]
  3. NORVASC [Concomitant]
  4. LEVOTHYROXINE SODIUM [Concomitant]
  5. ASTRIX [Concomitant]
  6. GLYBURIDE [Concomitant]
  7. DIABEX XR [Concomitant]
  8. DIABEX XR [Concomitant]
  9. GLUCOBAY [Concomitant]
  10. OROXINE [Concomitant]

REACTIONS (5)
  - HEPATIC ENZYME INCREASED [None]
  - MYALGIA [None]
  - NAUSEA [None]
  - RENAL IMPAIRMENT [None]
  - VOMITING [None]
